FAERS Safety Report 6296730-X (Version None)
Quarter: 2009Q3

REPORT INFORMATION
  Report Type: 
  Country: None (occurrence: None)
  Receive Date: 20090804
  Receipt Date: 20090626
  Transmission Date: 20100115
  Serious: Yes (Other)
  Sender: FDA-Public Use
  Company Number: PL-BAXTER-2009BH010641

PATIENT
  Age: 30 Year
  Sex: Female

DRUGS (1)
  1. THEOPHYLLINE IN DEXTROSE 5% IN PLASTIC CONTAINER [Suspect]
     Indication: RESPIRATORY DISORDER
     Dosage: 1,2MG/ML
     Route: 042
     Dates: start: 20090620, end: 20090620

REACTIONS (7)
  - ARRHYTHMIA [None]
  - DIARRHOEA [None]
  - DIZZINESS [None]
  - HYPOTONIA [None]
  - NAUSEA [None]
  - TREMOR [None]
  - VOMITING [None]
